FAERS Safety Report 20636690 (Version 2)
Quarter: 2022Q2

REPORT INFORMATION
  Report Type: Spontaneous
  Country: GB (occurrence: GB)
  Receive Date: 20220325
  Receipt Date: 20220425
  Transmission Date: 20220720
  Serious: Yes (Hospitalization)
  Sender: FDA-Public Use
  Company Number: GB-PFIZER INC-202200350475

PATIENT
  Age: 62 Year
  Sex: Male
  Weight: 115.9 kg

DRUGS (22)
  1. OXALIPLATIN [Suspect]
     Active Substance: OXALIPLATIN
     Indication: Neoplasm
     Dosage: 180 MG, EVERY 2 WEEKS
     Route: 042
     Dates: start: 20220119, end: 20220217
  2. LEUCOVORIN CALCIUM [Suspect]
     Active Substance: LEUCOVORIN CALCIUM
     Indication: Neoplasm
     Dosage: 870 MG, EVERY 2 WEEKS
     Route: 042
     Dates: start: 20220119, end: 20220217
  3. UCB-6114 [Suspect]
     Active Substance: UCB-6114
     Indication: Neoplasm
     Dosage: 500 MG, EVERY 2 WEEKS
     Route: 042
     Dates: start: 20220119, end: 20220217
  4. FLUOROURACIL [Concomitant]
     Active Substance: FLUOROURACIL
     Indication: Neoplasm
     Dosage: UNK UNK, CYCLIC (5000MG AND 900MG)
     Route: 042
     Dates: start: 20220119, end: 20220217
  5. ATORVASTATIN [Concomitant]
     Active Substance: ATORVASTATIN
     Dosage: UNK
     Dates: start: 2020
  6. EMPAGLIFLOZIN [Concomitant]
     Active Substance: EMPAGLIFLOZIN
     Dosage: UNK
     Dates: start: 202108
  7. GABAPENTIN [Concomitant]
     Active Substance: GABAPENTIN
     Dosage: UNK
     Dates: start: 2020
  8. GLICLAZIDE [Concomitant]
     Active Substance: GLICLAZIDE
     Dosage: UNK
     Dates: start: 202110
  9. METFORMIN [Concomitant]
     Active Substance: METFORMIN HYDROCHLORIDE
     Dosage: UNK
     Dates: start: 2018
  10. SEMAGLUTIDE [Concomitant]
     Active Substance: SEMAGLUTIDE
     Dosage: UNK
     Dates: start: 202108
  11. AMOXICILLIN\CLAVULANATE POTASSIUM [Concomitant]
     Active Substance: AMOXICILLIN\CLAVULANATE POTASSIUM
     Dosage: DURATION : 9 DAYS
     Dates: start: 20220204, end: 20220212
  12. CODEINE PHOSPHATE [Concomitant]
     Active Substance: CODEINE PHOSPHATE
     Dates: start: 2020
  13. DEXAMETHASONE [Concomitant]
     Active Substance: DEXAMETHASONE
  14. DOMPERIDONE [Concomitant]
     Active Substance: DOMPERIDONE
  15. IBUPROFEN [Concomitant]
     Active Substance: IBUPROFEN
     Dates: start: 20220125, end: 20220125
  16. MORPHINE SULFATE [Concomitant]
     Active Substance: MORPHINE SULFATE
     Dates: start: 20220125
  17. OMEPRAZOLE [Concomitant]
     Active Substance: OMEPRAZOLE
  18. ACETAMINOPHEN [Concomitant]
     Active Substance: ACETAMINOPHEN
     Dates: start: 20220125, end: 20220125
  19. SODIUM CHLORIDE [Concomitant]
     Active Substance: SODIUM CHLORIDE
  20. SOLIFENACIN [Concomitant]
     Active Substance: SOLIFENACIN
  21. PIPERACILLIN SODIUM\TAZOBACTAM SODIUM [Concomitant]
     Active Substance: PIPERACILLIN SODIUM\TAZOBACTAM SODIUM
     Dosage: DURATION : 4 DAYS
     Dates: start: 20220201, end: 20220204
  22. VANCOMYCIN [Concomitant]
     Active Substance: VANCOMYCIN
     Dosage: DURATION : 4 DAYS
     Dates: start: 20220201, end: 20220204

REACTIONS (1)
  - Infusion related reaction [Not Recovered/Not Resolved]

NARRATIVE: CASE EVENT DATE: 20220217
